FAERS Safety Report 5862891-7 (Version None)
Quarter: 2008Q3

REPORT INFORMATION
  Report Type: 
  Country: None (occurrence: None)
  Receive Date: 20080828
  Receipt Date: 20080821
  Transmission Date: 20090109
  Serious: Yes (Hospitalization)
  Sender: FDA-Public Use
  Company Number: A0734204A

PATIENT
  Age: 55 Year
  Sex: Male
  Weight: 111.4 kg

DRUGS (2)
  1. AVANDIA [Suspect]
     Dosage: 2MG PER DAY
     Route: 048
     Dates: start: 20050301, end: 20070401
  2. AVANDAMET [Suspect]
     Route: 048
     Dates: start: 20040101, end: 20070501

REACTIONS (7)
  - ASTHENIA [None]
  - ATRIOVENTRICULAR BLOCK [None]
  - CARDIAC DISORDER [None]
  - DYSPNOEA [None]
  - FATIGUE [None]
  - HEART INJURY [None]
  - MYOCARDIAL INFARCTION [None]
